FAERS Safety Report 7832510-9 (Version None)
Quarter: 2011Q4

REPORT INFORMATION
  Report Type: 
  Country: None (occurrence: None)
  Receive Date: 20111024
  Receipt Date: 20111014
  Transmission Date: 20120403
  Serious: Yes (Other)
  Sender: FDA-Public Use
  Company Number: US-BIOGENIDEC-2010BI036160

PATIENT
  Age: 46 Year
  Sex: Female

DRUGS (5)
  1. TOPAMAX [Concomitant]
  2. BIRTH CONTROL (NOS) [Concomitant]
  3. BACLOFEN [Concomitant]
  4. TYSABRI [Suspect]
     Indication: MULTIPLE SCLEROSIS
     Route: 042
     Dates: start: 20070702
  5. CYMBALTA [Concomitant]

REACTIONS (1)
  - SQUAMOUS CELL CARCINOMA OF SKIN [None]
